FAERS Safety Report 5457006-3 (Version None)
Quarter: 2007Q3

REPORT INFORMATION
  Report Type: 
  Country: None (occurrence: None)
  Receive Date: 20070918
  Receipt Date: 20070330
  Transmission Date: 20080115
  Serious: Yes (Other)
  Sender: FDA-Public Use
  Company Number: US-ASTRAZENECA-2006UW27645

PATIENT
  Sex: Male
  Weight: 104.5 kg

DRUGS (13)
  1. SEROQUEL [Suspect]
     Indication: SCHIZOPHRENIA
     Route: 048
  2. SEROQUEL [Suspect]
     Indication: BIPOLAR DISORDER
     Route: 048
  3. ABILIFY [Concomitant]
     Dates: start: 20050101
  4. CLOZARIL [Concomitant]
     Dates: start: 20050101
  5. GEODON [Concomitant]
     Dates: start: 20060101
  6. HALDOL [Concomitant]
     Dates: start: 19990101
  7. NAVANE [Concomitant]
     Dates: start: 20060101
  8. RISPERDAL [Concomitant]
     Dates: start: 20010101
  9. SOLIAN [Concomitant]
     Dates: start: 20020101
  10. STELAZINE [Concomitant]
     Dates: start: 20030101
  11. THORAZINE [Concomitant]
     Dates: start: 20000101
  12. TRILAFON [Concomitant]
     Dates: start: 20010101
  13. ZYPREXA [Concomitant]
     Dates: start: 20060101

REACTIONS (2)
  - DIABETIC KETOACIDOSIS [None]
  - TYPE 1 DIABETES MELLITUS [None]
